FAERS Safety Report 5093273-6 (Version None)
Quarter: 2006Q3

REPORT INFORMATION
  Report Type: 
  Country: None (occurrence: None)
  Receive Date: 20060829
  Receipt Date: 20060829
  Transmission Date: 20061208
  Serious: No
  Sender: FDA-Public Use
  Company Number: None

PATIENT
  Age: 22 Year
  Sex: Male

DRUGS (5)
  1. CIPROFLOXACIN HCL [Suspect]
     Indication: URINARY TRACT INFECTION
     Dosage: 400 MG Q12H IV
     Route: 042
     Dates: start: 20060614, end: 20060615
  2. LEVOFLOXACIN [Suspect]
     Dosage: 500 MG QD PO
     Route: 048
     Dates: start: 20060619
  3. DOXYCYCLINE [Concomitant]
  4. AMPICILLIN SODIUM [Concomitant]
  5. GENTAMICIN [Concomitant]

REACTIONS (5)
  - BURNING SENSATION [None]
  - ERYTHEMA [None]
  - INJECTION SITE PRURITUS [None]
  - INJECTION SITE URTICARIA [None]
  - PRURITUS [None]
